FAERS Safety Report 14962848 (Version 1)
Quarter: 2018Q2

REPORT INFORMATION
  Report Type: Spontaneous
  Country: US (occurrence: US)
  Receive Date: 20180601
  Receipt Date: 20180601
  Transmission Date: 20180711
  Serious: No
  Sender: FDA-Public Use
  Company Number: US-BIOGEN-2018BI00524724

PATIENT
  Age: 5 Year
  Sex: Female

DRUGS (3)
  1. SPINRAZA [Suspect]
     Active Substance: NUSINERSEN
     Indication: SPINAL MUSCULAR ATROPHY
     Route: 065
     Dates: start: 20170718
  2. SPINRAZA [Suspect]
     Active Substance: NUSINERSEN
     Dosage: FIFTH DOSE, FIRST MAINTENANCE DOSE
     Route: 065
     Dates: start: 20180102
  3. SPINRAZA [Suspect]
     Active Substance: NUSINERSEN
     Dosage: SIXTH DOSE, SECOND MAINTENANCE DOSE
     Route: 065
     Dates: start: 20180417

REACTIONS (7)
  - Injection site bruising [Recovered/Resolved]
  - Back pain [Recovered/Resolved]
  - Fatigue [Recovered/Resolved]
  - Headache [Recovered/Resolved]
  - Fall [Recovered/Resolved]
  - Musculoskeletal stiffness [Recovered/Resolved]
  - Dysstasia [Recovered/Resolved]

NARRATIVE: CASE EVENT DATE: 20180102
